FAERS Safety Report 17892804 (Version 6)
Quarter: 2021Q3

REPORT INFORMATION
  Report Type: Other
  Country: GT (occurrence: GT)
  Receive Date: 20200613
  Receipt Date: 20210929
  Transmission Date: 20211014
  Serious: Yes (Life-Threatening, Hospitalization, Other)
  Sender: FDA-Public Use
  Company Number: GT-ROCHE-2617763

PATIENT
  Age: 42 Year
  Sex: Female

DRUGS (15)
  1. XOLAIR [Suspect]
     Active Substance: OMALIZUMAB
     Route: 065
  2. ESOMEPRAZOLE. [Concomitant]
     Active Substance: ESOMEPRAZOLE MAGNESIUM
     Route: 048
     Dates: start: 2020
  3. CETRIZINE [Concomitant]
     Active Substance: CETIRIZINE HYDROCHLORIDE
     Indication: HYPERSENSITIVITY
     Route: 065
  4. ALLEGRA [Concomitant]
     Active Substance: FEXOFENADINE HYDROCHLORIDE
     Indication: URTICARIA
     Route: 065
     Dates: start: 2020
  5. XOLAIR [Suspect]
     Active Substance: OMALIZUMAB
     Indication: URTICARIA CHRONIC
     Dosage: CONCENTRATE FOR CONCENTRATE FOR SOLUTION FOR INFUSION
     Route: 058
     Dates: start: 201811
  6. XOLAIR [Suspect]
     Active Substance: OMALIZUMAB
     Route: 058
     Dates: start: 20210708
  7. AVAMYS [Concomitant]
     Active Substance: FLUTICASONE FUROATE
     Indication: RHINITIS
     Route: 045
  8. LEVOCETIRIZINE;MONTELUKAST [Concomitant]
     Indication: HYPERSENSITIVITY
     Route: 065
  9. EPINASTINE. [Concomitant]
     Active Substance: EPINASTINE HYDROCHLORIDE
     Indication: ANTIALLERGIC THERAPY
     Route: 031
  10. BUDESONIDE. [Concomitant]
     Active Substance: BUDESONIDE
     Indication: URTICARIA
     Dosage: UNK
     Route: 061
  11. XOLAIR [Suspect]
     Active Substance: OMALIZUMAB
     Dosage: 300 MG, EVERY 7 TO 8 WEEKS
     Route: 058
  12. XOLAIR [Suspect]
     Active Substance: OMALIZUMAB
     Route: 058
  13. MEROPENEM. [Suspect]
     Active Substance: MEROPENEM
     Indication: PRODUCT USED FOR UNKNOWN INDICATION
     Route: 065
  14. XOLAIR [Suspect]
     Active Substance: OMALIZUMAB
     Dosage: 150 MG (1 YEAR AND A HALF AGO)
     Route: 065
  15. MONTELUKAST [Suspect]
     Active Substance: MONTELUKAST SODIUM
     Indication: ANTIALLERGIC THERAPY
     Route: 065

REACTIONS (21)
  - Blister [Unknown]
  - Fear [Unknown]
  - Fluid retention [Unknown]
  - Muscle rigidity [Unknown]
  - Headache [Unknown]
  - Joint swelling [Unknown]
  - Off label use [Unknown]
  - Weight increased [Unknown]
  - Depression [Unknown]
  - Nausea [Unknown]
  - Urticaria [Unknown]
  - Pain [Unknown]
  - Escherichia infection [Unknown]
  - Gastrointestinal infection [Unknown]
  - Feeling abnormal [Unknown]
  - Tracheal obstruction [Unknown]
  - Arthritis [Unknown]
  - Inflammation [Unknown]
  - Alopecia [Unknown]
  - Hypersensitivity [Unknown]
  - Vomiting [Unknown]

NARRATIVE: CASE EVENT DATE: 202003
